FAERS Safety Report 8830095 (Version 1)
Quarter: 2012Q4

REPORT INFORMATION
  Report Type: 
  Country: US (occurrence: US)
  Receive Date: 20121008
  Receipt Date: 20121008
  Transmission Date: 20130627
  Serious: Yes (Hospitalization)
  Sender: FDA-Public Use
  Company Number: US-ASTRAZENECA-2012SE74920

PATIENT
  Sex: Male

DRUGS (2)
  1. BRILINTA [Suspect]
     Route: 048
  2. PLAVIX [Suspect]

REACTIONS (3)
  - Thrombosis in device [Recovering/Resolving]
  - Drug dose omission [Unknown]
  - Drug ineffective [Unknown]
